FAERS Safety Report 23799000 (Version 1)
Quarter: 2024Q2

REPORT INFORMATION
  Report Type: Spontaneous
  Country: US (occurrence: None)
  Receive Date: 20240427
  Receipt Date: 20240427
  Transmission Date: 20240716
  Serious: No
  Sender: FDA-Public Use
  Company Number: None

PATIENT
  Age: 77 Year
  Sex: Male
  Weight: 81.9 kg

DRUGS (2)
  1. CARBOPLATIN [Suspect]
     Active Substance: CARBOPLATIN
  2. PEMETREXED [Suspect]
     Active Substance: PEMETREXED

REACTIONS (10)
  - Drug ineffective [None]
  - Hypersomnia [None]
  - Gait inability [None]
  - Dysstasia [None]
  - Fall [None]
  - Oedema peripheral [None]
  - Productive cough [None]
  - Product use complaint [None]
  - Choking [None]
  - Respiratory arrest [None]

NARRATIVE: CASE EVENT DATE: 20240104
